FAERS Safety Report 5572252-6 (Version None)
Quarter: 2007Q4

REPORT INFORMATION
  Report Type: 
  Country: None (occurrence: None)
  Receive Date: 20071221
  Receipt Date: 20071212
  Transmission Date: 20080405
  Serious: Yes (Hospitalization, Other)
  Sender: FDA-Public Use
  Company Number: DE-PFIZER INC-2007104594

PATIENT
  Sex: Male

DRUGS (6)
  1. NEURONTIN [Suspect]
     Dosage: DAILY DOSE:100MG
     Route: 048
  2. LUMINAL [Concomitant]
  3. DIAZEPAM [Concomitant]
  4. TOPAMAX [Concomitant]
  5. THYRONAJOD [Concomitant]
  6. NOVALGIN [Concomitant]

REACTIONS (4)
  - COMA [None]
  - HYPOVENTILATION [None]
  - OVERDOSE [None]
  - PULMONARY OEDEMA [None]
